FAERS Safety Report 8693886 (Version 2)
Quarter: 2012Q4

REPORT INFORMATION
  Report Type: 
  Country: DK (occurrence: DK)
  Receive Date: 20120731
  Receipt Date: 20120903
  Transmission Date: 20130627
  Serious: Yes (Hospitalization)
  Sender: FDA-Public Use
  Company Number: DK-BAYER-2012-076248

PATIENT
  Age: 40 Year
  Sex: Female

DRUGS (2)
  1. MIRENA [Suspect]
     Indication: CONTRACEPTION
     Dosage: Daily dose 20 ?g
     Dates: start: 20120510, end: 20120529
  2. MIRENA [Suspect]
     Indication: DYSMENORRHOEA

REACTIONS (5)
  - Infection [Recovered/Resolved]
  - Ovarian cyst ruptured [Recovered/Resolved]
  - Abdominal pain [Recovered/Resolved]
  - Pyrexia [Recovered/Resolved]
  - Vaginal discharge [Recovered/Resolved]
